FAERS Safety Report 5017168-9 (Version None)
Quarter: 2006Q2

REPORT INFORMATION
  Report Type: 
  Country: None (occurrence: None)
  Receive Date: 20060525
  Receipt Date: 20060503
  Transmission Date: 20061013
  Serious: Yes (Hospitalization)
  Sender: FDA-Public Use
  Company Number: US200601002105

PATIENT
  Age: 69 Year
  Sex: Female

DRUGS (3)
  1. FORTEO [Suspect]
     Indication: OSTEOPOROSIS
     Dates: start: 20050601, end: 20051209
  2. FORTEO [Concomitant]
  3. HORMONES AND RELATED AGENTS [Concomitant]

REACTIONS (6)
  - DEVICE FAILURE [None]
  - LOWER LIMB FRACTURE [None]
  - NONSPECIFIC REACTION [None]
  - PHARMACEUTICAL PRODUCT COMPLAINT [None]
  - SURGICAL PROCEDURE REPEATED [None]
  - WHOLE BLOOD TRANSFUSION [None]
